FAERS Safety Report 20564544 (Version 1)
Quarter: 2022Q1

REPORT INFORMATION
  Report Type: Spontaneous
  Country: CA (occurrence: None)
  Receive Date: 20220308
  Receipt Date: 20220308
  Transmission Date: 20220423
  Serious: Yes (Other)
  Sender: FDA-Public Use
  Company Number: CA-ROCHE-3039468

PATIENT
  Age: 74 Year
  Sex: Female

DRUGS (1)
  1. RITUXIMAB [Suspect]
     Active Substance: RITUXIMAB
     Indication: Rheumatoid arthritis
     Route: 041

REACTIONS (3)
  - Cataract [Not Recovered/Not Resolved]
  - Eczema [Not Recovered/Not Resolved]
  - Rash erythematous [Not Recovered/Not Resolved]
